FAERS Safety Report 4475425-9 (Version None)
Quarter: 2004Q4

REPORT INFORMATION
  Report Type: 
  Country: None (occurrence: None)
  Receive Date: 20041014
  Receipt Date: 20041014
  Transmission Date: 20050328
  Serious: Yes (Life-Threatening, Hospitalization)
  Sender: FDA-Public Use
  Company Number: None

PATIENT
  Age: 87 Year
  Sex: Female
  Weight: 52.1637 kg

DRUGS (16)
  1. NITROFURANTOIN [Suspect]
     Indication: URINARY TRACT INFECTION
     Dates: start: 20040815
  2. DESIPRAMINE HCL [Suspect]
     Indication: ATRIAL FIBRILLATION
     Dosage: 10 QD
     Dates: start: 20040728, end: 20040815
  3. AMIODARONE HCL [Suspect]
     Indication: ATRIAL FIBRILLATION
     Dosage: 200 BID
     Dates: start: 20030601, end: 20040806
  4. TYLENOL [Concomitant]
  5. MOM [Concomitant]
  6. BISACODYL [Concomitant]
  7. CARDIZEM [Concomitant]
  8. MECLIZINE [Concomitant]
  9. LIPITOR [Concomitant]
  10. RHINOCORT [Concomitant]
  11. HYDROCHLOROTHIAZIDE [Concomitant]
  12. FLOVENT [Concomitant]
  13. COUMADIN [Concomitant]
  14. REGLAN [Concomitant]
  15. ATIVAN [Concomitant]
  16. PROTONIX [Concomitant]

REACTIONS (10)
  - CHEST X-RAY ABNORMAL [None]
  - CONVULSION [None]
  - ELECTROCARDIOGRAM QT PROLONGED [None]
  - MARKEDLY REDUCED DIETARY INTAKE [None]
  - NAUSEA [None]
  - PALLOR [None]
  - PULMONARY OEDEMA [None]
  - TORSADE DE POINTES [None]
  - VENTRICULAR TACHYCARDIA [None]
  - VOMITING [None]
